FAERS Safety Report 6026408-9 (Version None)
Quarter: 2009Q1

REPORT INFORMATION
  Report Type: 
  Country: None (occurrence: None)
  Receive Date: 20090102
  Receipt Date: 20080911
  Transmission Date: 20090719
  Serious: No
  Sender: FDA-Public Use
  Company Number: US-ABBOTT-08P-163-0472928-00

PATIENT

DRUGS (1)
  1. ULTIVA 1MG INJECTION, 3ML VIAL [Suspect]
     Indication: ANAESTHESIA
     Dosage: 2 VIALS
     Route: 042
     Dates: start: 20080826, end: 20080826

REACTIONS (1)
  - DRUG INEFFECTIVE [None]
